FAERS Safety Report 8792656 (Version 2)
Quarter: 2015Q2

REPORT INFORMATION
  Report Type: Report from Study
  Country: US (occurrence: US)
  Receive Date: 20120918
  Receipt Date: 20150406
  Transmission Date: 20150821
  Serious: Yes (Death)
  Sender: FDA-Public Use
  Company Number: US-ROCHE-1127008

PATIENT
  Sex: Female

DRUGS (11)
  1. TYKERB [Concomitant]
     Active Substance: LAPATINIB DITOSYLATE
     Route: 065
  2. ARANESP [Concomitant]
     Active Substance: DARBEPOETIN ALFA
     Route: 058
  3. AVASTIN [Suspect]
     Active Substance: BEVACIZUMAB
     Indication: BREAST CANCER
     Route: 042
  4. AVASTIN [Suspect]
     Active Substance: BEVACIZUMAB
     Route: 042
  5. ABRAXANE [Concomitant]
     Active Substance: PACLITAXEL
     Route: 042
  6. ABRAXANE [Concomitant]
     Active Substance: PACLITAXEL
     Route: 042
  7. ABRAXANE [Concomitant]
     Active Substance: PACLITAXEL
     Route: 042
  8. ALTEPLASE [Concomitant]
     Active Substance: ALTEPLASE
     Route: 042
  9. CAPECITABINE. [Concomitant]
     Active Substance: CAPECITABINE
     Route: 065
  10. AREDIA [Concomitant]
     Active Substance: PAMIDRONATE DISODIUM
     Route: 042
  11. SODIUM CHLORIDE. [Concomitant]
     Active Substance: SODIUM CHLORIDE
     Route: 042

REACTIONS (6)
  - Fatigue [Unknown]
  - Alopecia [Unknown]
  - Dry skin [Unknown]
  - Death [Fatal]
  - Erythema [Unknown]
  - Protein urine present [Unknown]
